FAERS Safety Report 4917391-5 (Version None)
Quarter: 2006Q1

REPORT INFORMATION
  Report Type: 
  Country: None (occurrence: None)
  Receive Date: 20060221
  Receipt Date: 20060105
  Transmission Date: 20060701
  Serious: Yes (Hospitalization)
  Sender: FDA-Public Use
  Company Number: JP-JPN-A200600010

PATIENT
  Age: 35 Year
  Sex: Male
  Weight: 75 kg

DRUGS (4)
  1. PAXIL [Suspect]
     Indication: DEPRESSION
     Dosage: 60MG PER DAY
     Route: 048
     Dates: start: 20041201, end: 20051222
  2. ZYPREXA [Suspect]
     Indication: DELUSIONAL DISORDER, UNSPECIFIED TYPE
     Dosage: 30MG PER DAY
     Route: 048
     Dates: start: 20050829, end: 20051222
  3. LIMAS [Suspect]
     Indication: DEPRESSION
     Dosage: 400MG TWICE PER DAY
     Route: 048
     Dates: start: 20051114, end: 20051222
  4. MAGLAX [Concomitant]
     Indication: CONSTIPATION
     Dosage: 1980MG PER DAY
     Route: 048
     Dates: end: 20051222

REACTIONS (4)
  - ATELECTASIS [None]
  - CONVULSIVE THRESHOLD LOWERED [None]
  - GRAND MAL CONVULSION [None]
  - HEMIPLEGIA [None]
